FAERS Safety Report 20589088 (Version 7)
Quarter: 2022Q4

REPORT INFORMATION
  Report Type: Spontaneous
  Country: JP (occurrence: JP)
  Receive Date: 20220314
  Receipt Date: 20221123
  Transmission Date: 20230113
  Serious: Yes (Other)
  Sender: FDA-Public Use
  Company Number: JP-BRISTOL-MYERS SQUIBB COMPANY-BMS-2022-036938

PATIENT
  Sex: Male

DRUGS (7)
  1. OPDIVO [Suspect]
     Active Substance: NIVOLUMAB
     Indication: Non-small cell lung cancer recurrent
     Route: 041
     Dates: start: 20220228, end: 20220303
  2. YERVOY [Suspect]
     Active Substance: IPILIMUMAB
     Indication: Non-small cell lung cancer recurrent
     Route: 041
     Dates: start: 20220228, end: 20220303
  3. DECADRON [Suspect]
     Active Substance: DEXAMETHASONE
     Indication: Product used for unknown indication
     Dosage: Q12H
     Route: 048
     Dates: start: 20220216
  4. CARBOPLATIN [Suspect]
     Active Substance: CARBOPLATIN
     Indication: Non-small cell lung cancer
     Route: 065
     Dates: start: 20220228
  5. CARBOPLATIN [Suspect]
     Active Substance: CARBOPLATIN
  6. PACLITAXEL [Suspect]
     Active Substance: PACLITAXEL
     Indication: Non-small cell lung cancer
     Route: 065
     Dates: start: 20220228
  7. PACLITAXEL [Suspect]
     Active Substance: PACLITAXEL

REACTIONS (3)
  - Retinal pigment epitheliopathy [Not Recovered/Not Resolved]
  - Serous retinal detachment [Not Recovered/Not Resolved]
  - Detachment of retinal pigment epithelium [Not Recovered/Not Resolved]

NARRATIVE: CASE EVENT DATE: 20220303
